FAERS Safety Report 8447252-9 (Version None)
Quarter: 2012Q2

REPORT INFORMATION
  Report Type: 
  Country: None (occurrence: None)
  Receive Date: 20120619
  Receipt Date: 20120615
  Transmission Date: 20120825
  Serious: No
  Sender: FDA-Public Use
  Company Number: US-PFIZER INC-2012145020

PATIENT
  Sex: Female
  Weight: 97.506 kg

DRUGS (2)
  1. IBUPROFEN (ADVIL) [Suspect]
     Indication: MYALGIA
     Dosage: ONE TO TWO TABLETS OF 200 MG DAILY, UNK
     Route: 048
     Dates: start: 20120601
  2. IBUPROFEN (ADVIL) [Suspect]
     Dosage: UNK, DAILY
     Route: 048
     Dates: start: 20120601, end: 20120615

REACTIONS (1)
  - OEDEMA PERIPHERAL [None]
